FAERS Safety Report 20489428 (Version 2)
Quarter: 2022Q2

REPORT INFORMATION
  Report Type: Report from Study
  Country: CO (occurrence: CO)
  Receive Date: 20220218
  Receipt Date: 20220405
  Transmission Date: 20220721
  Serious: Yes (Other)
  Sender: FDA-Public Use
  Company Number: CO-ABBVIE-21K-036-4218764-00

PATIENT
  Sex: Male
  Weight: 77 kg

DRUGS (1)
  1. HUMIRA [Suspect]
     Active Substance: ADALIMUMAB
     Indication: Product used for unknown indication
     Dosage: CITRATE FREE
     Route: 058
     Dates: start: 20120704, end: 20211107

REACTIONS (8)
  - Prostatomegaly [Recovered/Resolved]
  - Catheter site related reaction [Recovered/Resolved]
  - Prostatic disorder [Recovering/Resolving]
  - Thrombosis [Recovered/Resolved]
  - Procedural haemorrhage [Recovering/Resolving]
  - COVID-19 [Unknown]
  - Urinary tract infection [Recovered/Resolved]
  - Hypertension [Recovering/Resolving]

NARRATIVE: CASE EVENT DATE: 20140101
